FAERS Safety Report 26113865 (Version 1)
Quarter: 2025Q4

REPORT INFORMATION
  Report Type: Spontaneous
  Country: EU (occurrence: EU)
  Receive Date: 20251202
  Receipt Date: 20251202
  Transmission Date: 20260118
  Serious: Yes (Other)
  Sender: SANOFI AVENTIS
  Company Number: EU-SA-A01200400670

PATIENT
  Age: 7 Year
  Sex: Male

DRUGS (1)
  1. RASBURICASE [Suspect]
     Active Substance: RASBURICASE
     Indication: Burkitt^s lymphoma
     Dosage: UNK UNK,UNK
     Route: 065

REACTIONS (4)
  - Renal tubular injury [Unknown]
  - Anuria [Unknown]
  - Tetany [Unknown]
  - Hyperphosphataemia [Unknown]
